FAERS Safety Report 18046407 (Version 1)
Quarter: 2020Q3

REPORT INFORMATION
  Report Type: Spontaneous
  Country: US (occurrence: US)
  Receive Date: 20200720
  Receipt Date: 20200720
  Transmission Date: 20201103
  Serious: No
  Sender: FDA-Public Use
  Company Number: US-PFIZER INC-2020275719

PATIENT
  Sex: Female

DRUGS (1)
  1. BINIMETINIB [Suspect]
     Active Substance: BINIMETINIB
     Dosage: UNK

REACTIONS (3)
  - Rash [Unknown]
  - Fatigue [Unknown]
  - Palpitations [Unknown]
